FAERS Safety Report 10051569 (Version 1)
Quarter: 2014Q2

REPORT INFORMATION
  Report Type: Spontaneous
  Country: US (occurrence: US)
  Receive Date: 20140401
  Receipt Date: 20140401
  Transmission Date: 20141212
  Serious: No
  Sender: FDA-Public Use
  Company Number: US-009507513-1403USA003361

PATIENT
  Age: 50 Year
  Sex: Female

DRUGS (8)
  1. CORICIDIN HBP COLD AND FLU [Suspect]
     Indication: THROAT IRRITATION
     Dosage: UNK, UNKNOWN
     Route: 048
  2. CORICIDIN HBP COLD AND FLU [Suspect]
     Indication: NASOPHARYNGITIS
  3. CORICIDIN HBP COLD AND FLU [Suspect]
     Indication: NASAL CONGESTION
  4. CORICIDIN HBP COLD AND FLU [Suspect]
     Indication: RHINORRHOEA
  5. CORICIDIN HBP COLD AND FLU [Suspect]
     Indication: SNEEZING
  6. CORICIDIN HBP COLD AND FLU [Suspect]
     Indication: COUGH
  7. CORICIDIN HBP COLD AND FLU [Suspect]
     Indication: HEADACHE
  8. CORICIDIN HBP COLD AND FLU [Suspect]
     Indication: FATIGUE

REACTIONS (2)
  - Therapeutic response changed [Unknown]
  - Somnolence [Unknown]
